FAERS Safety Report 6098067-0 (Version None)
Quarter: 2009Q1

REPORT INFORMATION
  Report Type: 
  Country: None (occurrence: None)
  Receive Date: 20090227
  Receipt Date: 20090220
  Transmission Date: 20090719
  Serious: Yes (Hospitalization)
  Sender: FDA-Public Use
  Company Number: GB-ASTRAZENECA-2009GB00277

PATIENT
  Age: 27 Year
  Sex: Female

DRUGS (5)
  1. BUPIVACAINE [Suspect]
     Indication: SPINAL ANAESTHESIA
     Route: 037
     Dates: start: 20090105, end: 20090105
  2. BUPIVACAINE [Suspect]
     Indication: POSTOPERATIVE ANALGESIA
     Route: 037
     Dates: start: 20090105, end: 20090105
  3. SALINE [Concomitant]
     Indication: POSTOPERATIVE ANALGESIA
     Dosage: 2ML MIXED WITH BUPIVACAINE
     Route: 037
  4. DIAMORPHINE [Concomitant]
     Indication: POSTOPERATIVE ANALGESIA
     Dosage: 500MCG
     Route: 037
  5. ANAESTHESIA DRUGS [Concomitant]
     Indication: ANAESTHESIA

REACTIONS (3)
  - DIPLEGIA [None]
  - DRUG EFFECT PROLONGED [None]
  - NEUROMUSCULAR BLOCK PROLONGED [None]
